FAERS Safety Report 20608885 (Version 2)
Quarter: 2022Q2

REPORT INFORMATION
  Report Type: Spontaneous
  Country: JP (occurrence: JP)
  Receive Date: 20220317
  Receipt Date: 20220415
  Transmission Date: 20220720
  Serious: Yes (Other)
  Sender: FDA-Public Use
  Company Number: JP-DSJP-DSJ-2022-108413

PATIENT
  Age: 66 Year
  Sex: Male

DRUGS (13)
  1. ENHERTU [Suspect]
     Active Substance: FAM-TRASTUZUMAB DERUXTECAN-NXKI
     Indication: HER2 positive gastric cancer
     Dosage: 6.4 MG/KG, ONCE EVERY 3 WK
     Route: 041
  2. ENHERTU [Suspect]
     Active Substance: FAM-TRASTUZUMAB DERUXTECAN-NXKI
     Dosage: 5.4 MG/KG, ONCE EVERY 3 WK
     Route: 041
     Dates: start: 20201109, end: 20210405
  3. LOXOPROFEN [Concomitant]
     Active Substance: LOXOPROFEN
     Dosage: 60 MG, TID, AFTER EACH MEALS
     Route: 048
  4. VONOPRAZAN [Concomitant]
     Active Substance: VONOPRAZAN
     Dosage: 10 MG, QD, AFTER BREAKFAST
     Route: 048
  5. ACETAMINOPHEN [Concomitant]
     Active Substance: ACETAMINOPHEN
     Dosage: 600 MG, QID, AFTER EACH MEALS AND BEFORE BEDTIME
     Route: 048
  6. OXYCODONE HYDROCHLORIDE [Concomitant]
     Active Substance: OXYCODONE HYDROCHLORIDE
     Dosage: 5 MG, BID, AT 8:00 AND 20:00
     Route: 048
  7. OXYCODONE [Concomitant]
     Active Substance: OXYCODONE
     Dosage: 2.5 MG, 1-2 TIMES/WEEK
     Route: 048
  8. NALDEMEDINE [Concomitant]
     Active Substance: NALDEMEDINE
     Dosage: 0.2 MG, QD, AFTER BREAKFAST
     Route: 048
  9. MAGNESIUM OXIDE [Concomitant]
     Active Substance: MAGNESIUM OXIDE
     Indication: Constipation
     Dosage: 500 MG, TID, AFTER EACH MEALS, SELF-ADJUSTMENT
     Route: 048
  10. ALPRAZOLAM [Concomitant]
     Active Substance: ALPRAZOLAM
     Indication: Insomnia
     Dosage: 0.4 MG, AS NEEDED
     Route: 048
  11. SENNOSIDES A AND B [Concomitant]
     Active Substance: SENNOSIDES A AND B
     Indication: Constipation
     Dosage: 0.5 G, AS NEEDED
     Route: 048
  12. ALOXI [Concomitant]
     Active Substance: PALONOSETRON HYDROCHLORIDE
     Dosage: 0.75MG
     Route: 065
  13. DEXAMETHASONE SODIUM PHOSPHATE [Concomitant]
     Active Substance: DEXAMETHASONE SODIUM PHOSPHATE
     Dosage: 13.2MG
     Route: 065

REACTIONS (8)
  - Ascites [Unknown]
  - Faeces soft [Unknown]
  - White blood cell count decreased [Unknown]
  - Neutrophil count decreased [Unknown]
  - KL-6 increased [Unknown]
  - Decreased appetite [Unknown]
  - C-reactive protein increased [Unknown]
  - Pleural effusion [Unknown]
